FAERS Safety Report 8556140-9 (Version None)
Quarter: 2012Q3

REPORT INFORMATION
  Report Type: 
  Country: None (occurrence: None)
  Receive Date: 20120719
  Receipt Date: 20120711
  Transmission Date: 20120928
  Serious: Yes (Hospitalization)
  Sender: FDA-Public Use
  Company Number: 2012032862

PATIENT
  Age: 42 Year
  Sex: Male

DRUGS (1)
  1. IMMUNE GLOBULIN INTRAVENOUS (HUMAN) [Suspect]
     Indication: DEMYELINATING POLYNEUROPATHY
     Dosage: LAST DOSE PRIOR TO ONSET: 20 DAYS BEFORE, INTRAVENOUS
     Route: 042

REACTIONS (9)
  - SPLENIC VEIN THROMBOSIS [None]
  - ABDOMINAL TENDERNESS [None]
  - OFF LABEL USE [None]
  - VENA CAVA THROMBOSIS [None]
  - PORTAL VEIN THROMBOSIS [None]
  - RECTAL HAEMORRHAGE [None]
  - MESENTERIC VEIN THROMBOSIS [None]
  - INTESTINAL INFARCTION [None]
  - GASTROINTESTINAL HYPOMOTILITY [None]
